FAERS Safety Report 7100118-9 (Version None)
Quarter: 2010Q4

REPORT INFORMATION
  Report Type: 
  Country: None (occurrence: None)
  Receive Date: 20101112
  Receipt Date: 20100216
  Transmission Date: 20110411
  Serious: No
  Sender: FDA-Public Use
  Company Number: A0843115A

PATIENT
  Sex: Female

DRUGS (1)
  1. COREG [Suspect]
     Dosage: 3.125MG UNKNOWN
     Route: 065

REACTIONS (2)
  - CONFUSIONAL STATE [None]
  - MALAISE [None]
